FAERS Safety Report 8463484-8 (Version None)
Quarter: 2012Q2

REPORT INFORMATION
  Report Type: 
  Country: None (occurrence: None)
  Receive Date: 20120625
  Receipt Date: 20120619
  Transmission Date: 20120825
  Serious: Yes (Other)
  Sender: FDA-Public Use
  Company Number: US-BAYER-2011-005078

PATIENT
  Age: 58 Year
  Sex: Female
  Weight: 77.551 kg

DRUGS (84)
  1. BICITRA [Concomitant]
  2. FOLTX [Concomitant]
     Dosage: 1 TAB DAILY
     Dates: start: 20041012
  3. PLAVIX [Concomitant]
     Dosage: 75 MG, QD
     Dates: start: 20041101
  4. DEXAMETHASONE [Concomitant]
  5. ACETAMINOPHEN [Concomitant]
     Dosage: 650 MG, 2 TABS PRN
  6. ADRIAMYCIN PFS [Concomitant]
     Indication: CHEMOTHERAPY
     Dosage: 15.7 MG, IN 250 ML NOMRAL SALINE INFUSE OVER 24 HR DAILY
     Route: 042
     Dates: start: 20040223
  7. COMPAZINE [Concomitant]
     Dosage: 10 MG, Q6HR PRN
     Route: 042
  8. DILAUDID [Concomitant]
  9. MAGNEVIST [Suspect]
     Indication: COMPUTERISED TOMOGRAM ABDOMEN
     Dosage: UNK
     Dates: start: 20041003, end: 20041003
  10. GADOLINIUM IN UNSPECIFIED DRUG [Suspect]
     Indication: NUCLEAR MAGNETIC RESONANCE IMAGING BRAIN
     Dosage: UNK
     Dates: start: 20041031, end: 20041031
  11. PRAVACHOL [Concomitant]
     Indication: HYPERCHOLESTEROLAEMIA
     Dosage: 20 MG, HS
     Dates: start: 20041029
  12. PHOSLO [Concomitant]
     Dosage: 2 TABS TID WITH MEALS
  13. VITAMIN K1 [Concomitant]
     Dosage: 10 MG, OW EVERY MONDAY
     Route: 048
     Dates: start: 20040223
  14. ETOPOSIDE [Concomitant]
     Indication: CHEMOTHERAPY
     Dosage: 62.8 MG, IN 1 LITER NORMAL SALINE AND INFUSE OVER 24 HR DAILY
     Route: 042
     Dates: start: 20040223
  15. REGLAN [Concomitant]
     Dosage: 10 MG, Q6HR PRN
     Route: 042
  16. HYDROXYZINE [Concomitant]
     Indication: PRURITUS
     Dosage: 25 MG, Q12 HR PRN
  17. PLENDIL [Concomitant]
     Dosage: 10 MG, QD
     Route: 048
     Dates: start: 20040802
  18. NEUPOGEN [Concomitant]
     Dosage: 300 ?G, QD
     Route: 058
  19. OMNISCAN [Suspect]
     Indication: NUCLEAR MAGNETIC RESONANCE IMAGING
  20. ACYCLOVIR [Concomitant]
     Dosage: 200 MG, QD
     Route: 048
     Dates: start: 20030925
  21. DIGOXIN [Concomitant]
     Indication: SUPRAVENTRICULAR TACHYCARDIA
     Dosage: 0.5 MG, ONCE
     Route: 042
     Dates: start: 20050501
  22. MUCOMYST [Concomitant]
     Dosage: UNK UNK, BID
     Dates: start: 20040826
  23. RENAGEL [Concomitant]
     Dosage: 1600 MG, TID WITH MEALS
  24. CALCIJEX [Concomitant]
     Dosage: 1 MG, HS
     Route: 042
  25. LEVAQUIN [Concomitant]
     Indication: DEVICE RELATED INFECTION
     Dosage: UNK
     Dates: start: 20040117
  26. SIMETHICONE [Concomitant]
     Dosage: 80 MG, Q6HR PRN
     Route: 048
  27. RENAPHRO [Concomitant]
  28. MAGNEVIST [Suspect]
     Indication: IMAGING PROCEDURE
     Dosage: UNK
     Dates: start: 20041029, end: 20041029
  29. MAGNEVIST [Suspect]
     Dosage: UNK
     Dates: start: 20041213, end: 20041213
  30. OPTIMARK [Suspect]
     Indication: NUCLEAR MAGNETIC RESONANCE IMAGING
  31. GADOLINIUM IN UNSPECIFIED DRUG [Suspect]
     Indication: NUCLEAR MAGNETIC RESONANCE IMAGING ABDOMINAL
  32. SENSIPAR [Concomitant]
     Dosage: 90 MG, QD
  33. BIAXIN [Concomitant]
     Indication: GASTRITIS EROSIVE
  34. DEXAMETHASONE [Concomitant]
     Dosage: 40 MG, QD
     Route: 048
     Dates: start: 20040223
  35. ZOSYN [Concomitant]
     Indication: PSEUDOMONAL BACTERAEMIA
     Dosage: 1000 MG, UNK
     Route: 042
  36. CIPROFLOXACIN [Concomitant]
     Dosage: 500 MG, QD
     Dates: start: 20040101
  37. OCEAN [Concomitant]
     Dosage: UNK UNK, BID PRN
     Route: 045
  38. LOPERAMIDE [Concomitant]
     Dosage: 2 MG, PRN
     Route: 048
  39. SENOKOT [Concomitant]
     Dosage: ONE BID PRN
  40. CLONIDINE [Concomitant]
     Dosage: 0.4 MG, BID
     Route: 048
     Dates: start: 20040802
  41. ALBUMIN (HUMAN) [Concomitant]
     Dosage: 150 G, UNK
     Route: 042
  42. DIFLUCAN [Concomitant]
     Dosage: 100 MG, QD
  43. MAGNESIUM OXIDE [Concomitant]
     Dosage: 400 MG, UNK
     Route: 048
  44. POTASSIUM CHLORIDE [Concomitant]
     Dosage: 60 MEQ, ONCE
  45. GENTAMICIN [Concomitant]
     Indication: PSEUDOMONAL BACTERAEMIA
     Dosage: 80 MG, UNK
     Route: 042
  46. AMBIEN [Concomitant]
     Dosage: 5 MG, HS PRN
     Route: 048
  47. COMPAZINE [Concomitant]
     Dosage: 10 MG, Q6HR PRN
     Route: 048
  48. MAGNEVIST [Suspect]
     Dosage: UNK
     Dates: start: 20040701, end: 20040701
  49. MAGNEVIST [Suspect]
     Indication: ANGIOGRAM
     Dosage: UNK
     Dates: start: 20050217, end: 20050217
  50. VELCADE [Concomitant]
     Indication: CHEMOTHERAPY
     Dosage: 2.6 MG, UNK
     Route: 042
     Dates: start: 20030930
  51. ADENOSINE [Concomitant]
     Indication: SUPRAVENTRICULAR TACHYCARDIA
     Dosage: 6 MG, ONCE
     Dates: start: 20050501
  52. ATIVAN [Concomitant]
     Indication: ANXIETY
     Dosage: UNK UNK, PRN
  53. LISINOPRIL [Concomitant]
     Dosage: 40 MG, QD
  54. EPOGEN [Concomitant]
     Dosage: 10000 UNITS, HS
     Route: 042
  55. OXACILLIN [Concomitant]
     Dosage: UNK
     Dates: start: 20050501
  56. REGLAN [Concomitant]
     Indication: NAUSEA
     Dosage: 10 MG, Q6HR PRN
     Route: 048
  57. ZEMPLAR [Concomitant]
     Dosage: 4 ?G, HS
     Route: 042
  58. ROXANOL [Concomitant]
     Indication: PAIN
     Dosage: UNK UNK, PRN
  59. MAGNEVIST [Suspect]
     Indication: NUCLEAR MAGNETIC RESONANCE IMAGING
     Dosage: 20 ML, UNK
     Dates: start: 20030927, end: 20030927
  60. MAGNEVIST [Suspect]
     Dosage: UNK
     Dates: start: 20041110, end: 20041110
  61. MAGNEVIST [Suspect]
     Dosage: 20 ML, ONCE
     Dates: start: 20050519, end: 20050519
  62. GADOLINIUM IN UNSPECIFIED DRUG [Suspect]
     Indication: ANGIOGRAM
  63. ALLOPURINOL [Concomitant]
     Dosage: 100 MG, QD
  64. TYLENOL W/ CODEINE NO. 3 [Concomitant]
     Dosage: 2 TABS EVERY 4 HOURS AS NEEDED
     Dates: start: 20040827
  65. ATIVAN [Concomitant]
     Dosage: 1 MG, Q4HR PRN
     Route: 042
  66. ZOLOFT [Concomitant]
     Indication: DEPRESSION
     Dosage: 50 MG, QD
     Dates: start: 20040920
  67. NEPHROCAPS [Concomitant]
     Dosage: 1 CAP, QD
     Route: 048
  68. VITAMIN K1 [Concomitant]
     Dosage: 10 MG, OW EVERY MONDAY
     Route: 058
     Dates: start: 20040223
  69. CYCLOPHOSPHAMIDE [Concomitant]
     Indication: CHEMOTHERAPY
     Dosage: 628 MG, IN 1 LITER NORMAL SALINE INFUSE OVER 24 HR DAILY
     Route: 042
     Dates: start: 20040223
  70. NORCO [Concomitant]
     Indication: PAIN
     Dosage: 10-325 MG, HS PRN
  71. MIDODRINE HYDROCHLORIDE [Concomitant]
     Dosage: 5 MG, ONE-HALF HOUR BEFORE HS
  72. WARFARIN SODIUM [Concomitant]
  73. PROGRAF [Concomitant]
  74. MAGNEVIST [Suspect]
     Indication: NUCLEAR MAGNETIC RESONANCE IMAGING BRAIN
     Dosage: UNK, ONCE
     Dates: start: 20040115, end: 20040115
  75. GADOLINIUM IN UNSPECIFIED DRUG [Suspect]
     Indication: NUCLEAR MAGNETIC RESONANCE IMAGING
     Dosage: UNK
     Dates: start: 20050520, end: 20050520
  76. FOLIC ACID [Concomitant]
     Dosage: 1 MG, QD
     Route: 048
  77. ATIVAN [Concomitant]
     Dosage: 1 MG, Q4HR PRN
     Route: 048
  78. ASPIRIN [Concomitant]
     Dosage: 325 MG, QD
     Dates: start: 20040826
  79. PREVACID [Concomitant]
     Indication: GASTRITIS EROSIVE
     Dosage: 30 MG, QD
  80. METOPROLOL TARTRATE [Concomitant]
     Dosage: 50 MG, BID
  81. VANCOMYCIN [Concomitant]
     Indication: DEVICE RELATED INFECTION
     Dosage: UNK
     Dates: start: 20040117
  82. BACTRIM DS [Concomitant]
     Dosage: 800/160 MG, TIW
  83. ATARAX [Concomitant]
     Dosage: UNK
     Dates: start: 20050501
  84. NEURONTIN [Concomitant]
     Indication: HERPES ZOSTER

REACTIONS (23)
  - FIBROSIS [None]
  - SKIN HYPERTROPHY [None]
  - SKIN EXFOLIATION [None]
  - NEPHROGENIC SYSTEMIC FIBROSIS [None]
  - ERYTHEMA [None]
  - OEDEMA PERIPHERAL [None]
  - SCAR [None]
  - JOINT RANGE OF MOTION DECREASED [None]
  - OEDEMA [None]
  - PAIN OF SKIN [None]
  - SKIN FIBROSIS [None]
  - FATIGUE [None]
  - SKIN PLAQUE [None]
  - SKIN TIGHTNESS [None]
  - JOINT STIFFNESS [None]
  - SKIN HYPERPIGMENTATION [None]
  - CELLULITIS [None]
  - RASH [None]
  - PAIN [None]
  - DEFORMITY [None]
  - SKIN INDURATION [None]
  - MOBILITY DECREASED [None]
  - MUSCULOSKELETAL STIFFNESS [None]
